FAERS Safety Report 24268810 (Version 2)
Quarter: 2024Q4

REPORT INFORMATION
  Report Type: Report from Study
  Country: US (occurrence: US)
  Receive Date: 20240830
  Receipt Date: 20241202
  Transmission Date: 20250115
  Serious: Yes (Other)
  Sender: ABBVIE
  Company Number: US-ABBVIE-5896335

PATIENT
  Age: 49 Year
  Sex: Male

DRUGS (1)
  1. RINVOQ [Suspect]
     Active Substance: UPADACITINIB
     Indication: Crohn^s disease
     Route: 048
     Dates: start: 20240531

REACTIONS (3)
  - Ileocaecal resection [Unknown]
  - Gastrointestinal infection [Recovered/Resolved]
  - Intestinal operation [Unknown]

NARRATIVE: CASE EVENT DATE: 20240823
